FAERS Safety Report 5613703-8 (Version None)
Quarter: 2008Q1

REPORT INFORMATION
  Report Type: 
  Country: None (occurrence: None)
  Receive Date: 20080205
  Receipt Date: 20080129
  Transmission Date: 20080703
  Serious: Yes (Death, Life-Threatening, Other)
  Sender: FDA-Public Use
  Company Number: GB-JNJFOC-20080107297

PATIENT
  Sex: Female
  Weight: 54 kg

DRUGS (6)
  1. REMICADE [Suspect]
     Indication: RHEUMATOID ARTHRITIS
     Route: 042
  2. PREDNISONE TAB [Concomitant]
  3. ASPIRIN [Concomitant]
  4. GLICLAZIDE [Concomitant]
  5. PARACETAMOL [Concomitant]
  6. RANITIDINE [Concomitant]

REACTIONS (1)
  - DEATH [None]
